FAERS Safety Report 9352211 (Version 2)
Quarter: 2013Q3

REPORT INFORMATION
  Report Type: Spontaneous
  Country: JP (occurrence: JP)
  Receive Date: 20130617
  Receipt Date: 20130719
  Transmission Date: 20140515
  Serious: Yes (Life-Threatening, Hospitalization)
  Sender: FDA-Public Use
  Company Number: JP-009507513-1306JPN006375

PATIENT
  Age: 69 Year
  Sex: Female

DRUGS (9)
  1. BONALON [Suspect]
     Indication: OSTEOPOROSIS
     Dosage: 35 MG/WEEK
     Route: 048
     Dates: start: 200904, end: 20111019
  2. FOSAMAC TABLETS-5 [Suspect]
     Indication: OSTEOPOROSIS
     Dosage: 5 MG, QD
     Route: 048
  3. BENET [Suspect]
     Indication: OSTEOPOROSIS
     Dosage: UNK
     Route: 048
  4. RHEUMATREX [Suspect]
     Indication: RHEUMATOID ARTHRITIS
     Dosage: UNK
     Route: 048
     Dates: start: 20061201, end: 20090819
  5. RHEUMATREX [Suspect]
     Dosage: UNK
     Route: 048
     Dates: start: 20090820, end: 20111106
  6. FOLIAMIN [Concomitant]
     Indication: VITAMIN SUPPLEMENTATION
     Dosage: UNK
     Route: 048
     Dates: start: 20041104, end: 20111106
  7. NU-LOTAN [Concomitant]
     Indication: HYPERTENSION
     Dosage: 50 MG, QD
     Route: 048
     Dates: start: 20060405
  8. SELBEX [Concomitant]
     Indication: GASTRITIS PROPHYLAXIS
     Dosage: 100 MG, QD
     Route: 048
     Dates: start: 20030707, end: 20120222
  9. TAKEPRON [Concomitant]
     Indication: GASTROOESOPHAGEAL REFLUX DISEASE
     Dosage: 15 MG, QD
     Route: 048
     Dates: start: 20110824

REACTIONS (2)
  - Osteonecrosis of jaw [Not Recovered/Not Resolved]
  - Lymphoma [Recovered/Resolved]
